FAERS Safety Report 4401112-9 (Version None)
Quarter: 2004Q3

REPORT INFORMATION
  Report Type: 
  Country: None (occurrence: None)
  Receive Date: 20040907
  Receipt Date: 20031106
  Transmission Date: 20050211
  Serious: No
  Sender: FDA-Public Use
  Company Number: US-BRISTOL-MYERS SQUIBB COMPANY-12428603

PATIENT
  Age: 72 Year
  Sex: Male
  Weight: 79 kg

DRUGS (8)
  1. COUMADIN [Suspect]
     Indication: AORTIC VALVE REPLACEMENT
     Route: 048
     Dates: start: 19950101
  2. TERAZOSIN HCL [Interacting]
     Dosage: DOSE INCREASED FROM 10MG TO 15MG, DATE NOT SPECIFIED
  3. TOPROL-XL [Concomitant]
  4. LISINOPRIL [Concomitant]
  5. PROSCAR [Concomitant]
  6. ZETIA [Concomitant]
  7. ZINC [Concomitant]
  8. FOLIC ACID [Concomitant]

REACTIONS (1)
  - DRUG INTERACTION [None]
